FAERS Safety Report 10653423 (Version 1)
Quarter: 2014Q4

REPORT INFORMATION
  Report Type: Report from Study
  Country: CH (occurrence: CH)
  Receive Date: 20141215
  Receipt Date: 20141215
  Transmission Date: 20150529
  Serious: Yes (Other)
  Sender: FDA-Public Use
  Company Number: PHHY2014CH162752

PATIENT
  Age: 69 Year
  Sex: Female

DRUGS (1)
  1. AFINITOR [Suspect]
     Active Substance: EVEROLIMUS
     Indication: BREAST CANCER
     Dosage: 10 MG, UNK
     Route: 048
     Dates: start: 20130201, end: 20130301

REACTIONS (3)
  - Aphthous stomatitis [Recovered/Resolved]
  - Weight decreased [Recovered/Resolved]
  - Quality of life decreased [Recovered/Resolved]

NARRATIVE: CASE EVENT DATE: 20130215
